FAERS Safety Report 19480927 (Version 1)
Quarter: 2021Q2

REPORT INFORMATION
  Report Type: Spontaneous
  Country: FR (occurrence: FR)
  Receive Date: 20210630
  Receipt Date: 20210630
  Transmission Date: 20210717
  Serious: Yes (Other)
  Sender: FDA-Public Use
  Company Number: FR-BAXTER-2021BAX017111

PATIENT
  Age: 1 Month
  Sex: Male
  Weight: 6.8 kg

DRUGS (31)
  1. EAU POUR PREPARATIONS INJECTABLES VIAFLO, SOLVANT POUR PREPARATION PAR [Suspect]
     Active Substance: WATER
     Indication: PARENTERAL NUTRITION
     Dosage: 1ST BAG
     Route: 042
     Dates: start: 20210611
  2. EAU POUR PREPARATIONS INJECTABLES VIAFLO, SOLVANT POUR PREPARATION PAR [Suspect]
     Active Substance: WATER
     Dosage: 2ND BAG; FLOW RATE INCREASED IN INCREMENTS FROM 0.9ML/H TO 28.5ML/H
     Route: 042
     Dates: start: 20210612
  3. FERROSTRANE [Suspect]
     Active Substance: SODIUM FEREDETATE
     Indication: ANAEMIA NEONATAL
     Route: 048
     Dates: start: 20210528
  4. SODIUM CHLORIDE. [Suspect]
     Active Substance: SODIUM CHLORIDE
     Indication: PARENTERAL NUTRITION
     Dosage: 1ST BAG
     Route: 042
     Dates: start: 20210611
  5. POTASSIUM CHLORIDE. [Suspect]
     Active Substance: POTASSIUM CHLORIDE
     Dosage: 2ND BAG;FLOW RATE INCREASED IN INCREMENTS FROM 0.9ML/H TO 28.5ML/H
     Route: 042
     Dates: start: 20210612
  6. ZINC. [Suspect]
     Active Substance: ZINC
     Dosage: 3RD  BAG
     Route: 042
     Dates: start: 20210613
  7. SODIUM CHLORIDE. [Suspect]
     Active Substance: SODIUM CHLORIDE
     Dosage: 3RD BAG
     Route: 042
     Dates: start: 20210612
  8. POTASSIUM CHLORIDE. [Suspect]
     Active Substance: POTASSIUM CHLORIDE
     Dosage: 3RD BAG
     Route: 042
     Dates: start: 20210613
  9. GLUCOSE [Suspect]
     Active Substance: DEXTROSE
     Indication: PARENTERAL NUTRITION
     Dosage: 1ST BAG
     Route: 042
     Dates: start: 20210611
  10. VANCOMYCINE [Suspect]
     Active Substance: VANCOMYCIN
     Indication: STAPHYLOCOCCAL SEPSIS
     Route: 042
     Dates: start: 20210608, end: 20210615
  11. SANDOSTATINE [Suspect]
     Active Substance: OCTREOTIDE ACETATE
     Indication: HYPERINSULINISM
     Route: 042
     Dates: start: 20210512
  12. PRIMENE 10%, SOLUTION INJECTABLE POUR PERFUSION [Suspect]
     Active Substance: AMINO ACIDS, SOURCE UNSPECIFIED
     Dosage: 2ND BAG;FLOW RATE INCREASED IN INCREMENTS FROM 0.9ML/H TO 28.5ML/H
     Route: 042
     Dates: start: 20210612
  13. MAGNESIUM SULPHATE [Suspect]
     Active Substance: MAGNESIUM SULFATE
     Indication: PARENTERAL NUTRITION
     Dosage: 1ST BAG
     Route: 042
     Dates: start: 20210611
  14. GLUCOSE [Suspect]
     Active Substance: DEXTROSE
     Dosage: 3RD BAG
     Route: 042
     Dates: start: 20210613
  15. PHOCYTAN [Suspect]
     Active Substance: .ALPHA.-GLUCOSE-1-PHOSPHATE
     Dosage: 2ND BAG;FLOW RATE INCREASED IN INCREMENTS FROM 0.9ML/H TO 28.5ML/H
     Route: 042
     Dates: start: 20210612
  16. PHOCYTAN [Suspect]
     Active Substance: .ALPHA.-GLUCOSE-1-PHOSPHATE
     Dosage: 3RD BAG
     Route: 042
     Dates: start: 20210612
  17. CALCIUM GLUCONATE. [Suspect]
     Active Substance: CALCIUM GLUCONATE
     Indication: PARENTERAL NUTRITION
     Dosage: 1ST BAG
     Route: 042
     Dates: start: 20210611
  18. MAGNESIUM SULPHATE [Suspect]
     Active Substance: MAGNESIUM SULFATE
     Dosage: 2ND BAG;FLOW RATE INCREASED IN INCREMENTS FROM 0.9ML/H TO 28.5ML/H
     Route: 042
     Dates: start: 20210612
  19. ZINC. [Suspect]
     Active Substance: ZINC
     Dosage: 2ND BAG;FLOW RATE INCREASED IN INCREMENTS FROM 0.9ML/H TO 28.5ML/H
     Route: 042
     Dates: start: 20210612
  20. CALCIUM GLUCONATE. [Suspect]
     Active Substance: CALCIUM GLUCONATE
     Dosage: 3RD BAG
     Route: 042
     Dates: start: 20210613
  21. PRIMENE 10%, SOLUTION INJECTABLE POUR PERFUSION [Suspect]
     Active Substance: AMINO ACIDS, SOURCE UNSPECIFIED
     Indication: PARENTERAL NUTRITION
     Dosage: 1ST BAG
     Route: 042
     Dates: start: 20210611
  22. EAU POUR PREPARATIONS INJECTABLES VIAFLO, SOLVANT POUR PREPARATION PAR [Suspect]
     Active Substance: WATER
     Dosage: 3RD BAG
     Route: 042
     Dates: start: 20210613
  23. PRIMENE 10%, SOLUTION INJECTABLE POUR PERFUSION [Suspect]
     Active Substance: AMINO ACIDS, SOURCE UNSPECIFIED
     Dosage: 3RD BAG
     Route: 042
     Dates: start: 20210613
  24. MAGNESIUM SULPHATE [Suspect]
     Active Substance: MAGNESIUM SULFATE
     Dosage: 3RD BAG
     Route: 042
     Dates: start: 20210613
  25. GLUCOSE [Suspect]
     Active Substance: DEXTROSE
     Dosage: 2ND BAG;FLOW RATE INCREASED IN INCREMENTS FROM 0.9ML/H TO 28.5ML/H
     Route: 042
     Dates: start: 20210612
  26. PHOCYTAN [Suspect]
     Active Substance: .ALPHA.-GLUCOSE-1-PHOSPHATE
     Indication: PARENTERAL NUTRITION
     Dosage: 1ST BAG
     Route: 042
     Dates: start: 20210611
  27. CALCIUM GLUCONATE. [Suspect]
     Active Substance: CALCIUM GLUCONATE
     Dosage: 2ND BAG;FLOW RATE INCREASED IN INCREMENTS FROM 0.9ML/H TO 28.5ML/H
     Route: 042
     Dates: start: 20210612
  28. SODIUM CHLORIDE. [Suspect]
     Active Substance: SODIUM CHLORIDE
     Dosage: 2ND BAG;FLOW RATE INCREASED IN INCREMENTS FROM 0.9ML/H TO 28.5ML/H
     Route: 042
     Dates: start: 20210612
  29. POTASSIUM CHLORIDE. [Suspect]
     Active Substance: POTASSIUM CHLORIDE
     Indication: PARENTERAL NUTRITION
     Dosage: 1ST BAG
     Route: 042
     Dates: start: 20210611
  30. ZINC. [Suspect]
     Active Substance: ZINC
     Indication: PARENTERAL NUTRITION
     Dosage: 1ST BAG
     Route: 042
     Dates: start: 20210611
  31. ADRIGYL [Suspect]
     Active Substance: CHOLECALCIFEROL
     Indication: VITAMIN SUPPLEMENTATION
     Dosage: 4 DROPS
     Route: 048
     Dates: start: 20210422

REACTIONS (2)
  - Product preparation error [Unknown]
  - Hypoglycaemia [Recovered/Resolved]

NARRATIVE: CASE EVENT DATE: 202106
